FAERS Safety Report 5056463-4 (Version None)
Quarter: 2006Q2

REPORT INFORMATION
  Report Type: 
  Country: None (occurrence: None)
  Receive Date: 20060616
  Receipt Date: 20051229
  Transmission Date: 20061013
  Serious: Yes (Other)
  Sender: FDA-Public Use
  Company Number: 2005131155

PATIENT
  Age: 51 Year
  Sex: Female
  Weight: 65.318 kg

DRUGS (6)
  1. ESTRING [Suspect]
     Indication: BLADDER PAIN
     Dosage: VAGINAL/8 YEARS AGO
     Route: 067
  2. ESTRING [Suspect]
     Indication: VAGINAL BURNING SENSATION
     Dosage: VAGINAL/8 YEARS AGO
     Route: 067
  3. CHEMOTHERAPY NOS (CHEMOTHERAPY NOS) [Suspect]
     Indication: BREAST CANCER
  4. WELLBUTRIN [Concomitant]
  5. DEPAKOTE [Concomitant]
  6. LIPITOR [Concomitant]

REACTIONS (4)
  - BLADDER PAIN [None]
  - BREAST CANCER [None]
  - VAGINAL BURNING SENSATION [None]
  - WEIGHT INCREASED [None]
